FAERS Safety Report 9836269 (Version 1)
Quarter: 2014Q1

REPORT INFORMATION
  Report Type: Spontaneous
  Country: US (occurrence: US)
  Receive Date: 20140123
  Receipt Date: 20140123
  Transmission Date: 20141002
  Serious: No
  Sender: FDA-Public Use
  Company Number: US-009507513-1401USA008164

PATIENT
  Sex: Female
  Weight: 127.44 kg

DRUGS (1)
  1. NEXPLANON [Suspect]
     Dosage: 1 DF, UNK
     Route: 059
     Dates: start: 20130128, end: 20140116

REACTIONS (2)
  - Device breakage [Recovered/Resolved]
  - No adverse event [Unknown]
